FAERS Safety Report 8200202-2 (Version None)
Quarter: 2012Q1

REPORT INFORMATION
  Report Type: 
  Country: None (occurrence: None)
  Receive Date: 20120312
  Receipt Date: 20120306
  Transmission Date: 20120608
  Serious: Yes (Hospitalization)
  Sender: FDA-Public Use
  Company Number: DE-PFIZER INC-2012014122

PATIENT
  Age: 42 Year
  Sex: Male
  Weight: 79 kg

DRUGS (3)
  1. HYDROCORTISONE [Concomitant]
     Indication: HYPOPITUITARISM
     Dosage: 20 MG DAILY
     Dates: start: 20010101
  2. GENOTROPIN [Suspect]
     Indication: GROWTH HORMONE DEFICIENCY
     Dosage: 0.4 MG, 1X/DAY
     Route: 058
     Dates: start: 20041001, end: 20120101
  3. LEVOTHYROXINE SODIUM [Concomitant]
     Indication: HYPOPITUITARISM
     Dosage: 100 UG DAILY
     Route: 048
     Dates: start: 20010101

REACTIONS (1)
  - FOLLICLE CENTRE LYMPHOMA, FOLLICULAR GRADE I, II, III STAGE II [None]
